FAERS Safety Report 14453676 (Version 2)
Quarter: 2018Q3

REPORT INFORMATION
  Report Type: Spontaneous
  Country: DE (occurrence: DE)
  Receive Date: 20180129
  Receipt Date: 20180730
  Transmission Date: 20181010
  Serious: Yes (Life-Threatening, Other)
  Sender: FDA-Public Use
  Company Number: DE-GLAXOSMITHKLINE-DE2018012708

PATIENT
  Age: 77 Year
  Sex: Male
  Weight: 75 kg

DRUGS (3)
  1. CEFUROXIME. [Suspect]
     Active Substance: CEFUROXIME
     Indication: SUPERINFECTION
     Dosage: UNK
     Route: 065
     Dates: start: 20171003, end: 20171006
  2. ORENCIA [Suspect]
     Active Substance: ABATACEPT
     Indication: PRODUCT USED FOR UNKNOWN INDICATION
     Dosage: UNK, Q2WK
     Route: 065
     Dates: start: 20131014
  3. TAZOBAC [Suspect]
     Active Substance: PIPERACILLIN SODIUM\TAZOBACTAM SODIUM
     Indication: SUPERINFECTION
     Dosage: UNK
     Route: 065
     Dates: start: 20171006, end: 20171011

REACTIONS (6)
  - Leukopenia [Recovering/Resolving]
  - Genitourinary tract infection [Unknown]
  - Off label use [Unknown]
  - Bladder disorder [Unknown]
  - Neutropenia [Unknown]
  - Granulocytopenia [Unknown]

NARRATIVE: CASE EVENT DATE: 20171120
